FAERS Safety Report 8158875-9 (Version None)
Quarter: 2012Q1

REPORT INFORMATION
  Report Type: 
  Country: None (occurrence: None)
  Receive Date: 20120223
  Receipt Date: 20120220
  Transmission Date: 20120608
  Serious: Yes (Other)
  Sender: FDA-Public Use
  Company Number: BE-PFIZER INC-2012031734

PATIENT
  Age: 21 Year
  Sex: Male
  Weight: 85 kg

DRUGS (1)
  1. VARENICLINE TARTRATE [Suspect]
     Indication: SMOKING CESSATION THERAPY
     Dosage: 0.5 MG, 1X/DAY
     Route: 048
     Dates: start: 20120204, end: 20120205

REACTIONS (7)
  - SUICIDAL IDEATION [None]
  - VOMITING [None]
  - CHILLS [None]
  - DEPRESSED MOOD [None]
  - HEADACHE [None]
  - PSYCHIATRIC DECOMPENSATION [None]
  - PALPITATIONS [None]
